FAERS Safety Report 19632809 (Version 2)
Quarter: 2021Q3

REPORT INFORMATION
  Report Type: Spontaneous
  Country: US (occurrence: US)
  Receive Date: 20210730
  Receipt Date: 20210831
  Transmission Date: 20211014
  Serious: No
  Sender: FDA-Public Use
  Company Number: US-HETERO-HET2021US01457

PATIENT

DRUGS (3)
  1. VALACYCLOVIR [Suspect]
     Active Substance: VALACYCLOVIR HYDROCHLORIDE
     Indication: HERPES ZOSTER
     Dosage: 1 GRAM THREE TIMES A DAY
     Route: 065
     Dates: start: 20210702, end: 20210702
  2. LIPOFLAVONOID                      /00457001/ [Concomitant]
     Indication: TINNITUS
     Dosage: UNK
     Route: 065
  3. VITAMINS                           /00067501/ [Concomitant]
     Active Substance: VITAMINS
     Indication: PRODUCT USED FOR UNKNOWN INDICATION
     Dosage: UNK
     Route: 065

REACTIONS (6)
  - Feeling hot [Unknown]
  - Flushing [Unknown]
  - Drug ineffective [Unknown]
  - Paraesthesia [Unknown]
  - Anxiety [Unknown]
  - Disease progression [Unknown]

NARRATIVE: CASE EVENT DATE: 20210716
